FAERS Safety Report 8125640-8 (Version None)
Quarter: 2012Q1

REPORT INFORMATION
  Report Type: 
  Country: None (occurrence: None)
  Receive Date: 20120209
  Receipt Date: 20120204
  Transmission Date: 20120608
  Serious: Yes (Hospitalization, Other)
  Sender: FDA-Public Use
  Company Number: US-BAYER-200933776NA

PATIENT
  Age: 36 Year
  Sex: Female
  Weight: 91 kg

DRUGS (7)
  1. YAZ [Suspect]
     Dosage: UNK UNK, QD
     Route: 048
     Dates: start: 20070501, end: 20071001
  2. NSAID'S [Concomitant]
     Route: 065
     Dates: start: 19990101
  3. SUCCINYLCHOLINE CHLORIDE [Concomitant]
     Route: 042
     Dates: start: 20071023
  4. LEVONORGESTREL + ETHINYL ESTRADIOL [Concomitant]
     Indication: UTERINE LEIOMYOMA
  5. NAPROXEN [Concomitant]
     Dosage: UNK
     Dates: start: 20070909
  6. NSAID'S [Concomitant]
     Dosage: UNK
  7. LEVONORGESTREL + ETHINYL ESTRADIOL [Concomitant]
     Indication: MENORRHAGIA
     Dosage: UNK
     Dates: start: 20071001, end: 20071022

REACTIONS (7)
  - PULMONARY EMBOLISM [None]
  - PANIC ATTACK [None]
  - HYPERCOAGULATION [None]
  - DEEP VEIN THROMBOSIS [None]
  - ABASIA [None]
  - POST-TRAUMATIC STRESS DISORDER [None]
  - PAIN IN EXTREMITY [None]
